FAERS Safety Report 12225512 (Version 1)
Quarter: 2016Q1

REPORT INFORMATION
  Report Type: Spontaneous
  Country: US (occurrence: US)
  Receive Date: 20160331
  Receipt Date: 20160331
  Transmission Date: 20160526
  Serious: Yes (Death, Hospitalization)
  Sender: FDA-Public Use
  Company Number: US-MYLANLABS-2016M1013449

PATIENT

DRUGS (6)
  1. PHENYTOIN. [Suspect]
     Active Substance: PHENYTOIN
     Indication: MEDICATION ERROR
     Route: 065
  2. MIDAZOLAM [Suspect]
     Active Substance: MIDAZOLAM\MIDAZOLAM HYDROCHLORIDE
     Indication: MEDICATION ERROR
     Route: 065
  3. THIOPENTAL SODIUM. [Suspect]
     Active Substance: THIOPENTAL SODIUM
     Indication: MEDICATION ERROR
     Route: 065
  4. TRANEXAMIC ACID. [Suspect]
     Active Substance: TRANEXAMIC ACID
     Indication: SPINAL ANAESTHESIA
     Dosage: 2CC SOLUTION
     Route: 037
  5. AMIODARONE [Suspect]
     Active Substance: AMIODARONE
     Indication: MEDICATION ERROR
     Route: 065
  6. DIAZEPAM. [Suspect]
     Active Substance: DIAZEPAM
     Indication: MEDICATION ERROR
     Dosage: UNK
     Route: 065

REACTIONS (10)
  - Haemodynamic instability [Unknown]
  - Agitation [Unknown]
  - Maternal exposure during delivery [Fatal]
  - Muscle spasms [Unknown]
  - Wrong drug administered [Fatal]
  - Cardio-respiratory arrest [Fatal]
  - Ventricular tachycardia [Unknown]
  - Status epilepticus [Unknown]
  - Tetany [Unknown]
  - Back pain [Unknown]
